FAERS Safety Report 11261689 (Version 2)
Quarter: 2015Q3

REPORT INFORMATION
  Report Type: Spontaneous
  Country: CH (occurrence: CH)
  Receive Date: 20150710
  Receipt Date: 20150716
  Transmission Date: 20151125
  Serious: Yes (Other)
  Sender: FDA-Public Use
  Company Number: CH-009507513-1507CHE002390

PATIENT
  Age: 27 Year
  Sex: Male

DRUGS (3)
  1. REMERON [Suspect]
     Active Substance: MIRTAZAPINE
     Dosage: UNK
  2. ALCOHOL. [Suspect]
     Active Substance: ALCOHOL
     Dosage: 5 LITERS OF BEER
     Route: 048
     Dates: start: 20150129, end: 20150129
  3. REMERON [Suspect]
     Active Substance: MIRTAZAPINE
     Dosage: 2 DOSE UNITS, ONCE
     Route: 048
     Dates: start: 20150129, end: 20150129

REACTIONS (6)
  - Poisoning [Recovered/Resolved]
  - Agitation [Recovered/Resolved]
  - Somnolence [Recovered/Resolved]
  - Drug administration error [Unknown]
  - Suicide attempt [Recovered/Resolved]
  - Aggression [Recovered/Resolved]

NARRATIVE: CASE EVENT DATE: 20150129
